FAERS Safety Report 4579152-9 (Version None)
Quarter: 2005Q1

REPORT INFORMATION
  Report Type: 
  Country: None (occurrence: None)
  Receive Date: 20050208
  Receipt Date: 20050208
  Transmission Date: 20050727
  Serious: Yes (Life-Threatening, Hospitalization)
  Sender: FDA-Public Use
  Company Number: None

PATIENT
  Age: 65 Year
  Sex: Male
  Weight: 90.7194 kg

DRUGS (2)
  1. DEPAKOTE [Suspect]
     Indication: BIPOLAR DISORDER
     Dosage: 1500/H -} 2500 / DAY PO
     Route: 048
  2. LITHICUM [Concomitant]

REACTIONS (4)
  - CELLULITIS [None]
  - DRUG EFFECT DECREASED [None]
  - PANCREATITIS ACUTE [None]
  - RENAL FAILURE CHRONIC [None]
